FAERS Safety Report 6188916-X (Version None)
Quarter: 2009Q2

REPORT INFORMATION
  Report Type: 
  Country: None (occurrence: None)
  Receive Date: 20090513
  Receipt Date: 20090513
  Transmission Date: 20091009
  Serious: Yes (Other)
  Sender: FDA-Public Use
  Company Number: US-PFIZER INC-2008013279

PATIENT
  Sex: Female
  Weight: 68 kg

DRUGS (2)
  1. LYRICA [Suspect]
     Indication: LUMBAR RADICULOPATHY
     Dosage: 75 MG, 2X/DAY
  2. FLEXERIL [Suspect]
     Dosage: 10 MG, 3X/DAY

REACTIONS (2)
  - DRUG DEPENDENCE [None]
  - PAIN [None]
